FAERS Safety Report 15136456 (Version 1)
Quarter: 2018Q3

REPORT INFORMATION
  Report Type: Report from Study
  Country: KR (occurrence: KR)
  Receive Date: 20180712
  Receipt Date: 20180712
  Transmission Date: 20181010
  Serious: Yes (Life-Threatening, Other)
  Sender: FDA-Public Use
  Company Number: KR-B.I. PHARMACEUTICALS,INC./RIDGEFIELD-2018-BI-034744

PATIENT
  Age: 1 Year
  Sex: Male

DRUGS (4)
  1. IPRATROPIUM BROMIDE. [Suspect]
     Active Substance: IPRATROPIUM BROMIDE
     Indication: BRONCHOSPASM
     Route: 065
  2. ISOFLURANE. [Suspect]
     Active Substance: ISOFLURANE
     Indication: BRONCHOSPASM
     Dosage: STRENGTH: 1%
     Route: 055
  3. BUDESONIDE. [Suspect]
     Active Substance: BUDESONIDE
     Indication: PRODUCT USED FOR UNKNOWN INDICATION
     Dosage: FORMULATION: NEBULIZED
     Route: 065
  4. ALBUTEROL. [Suspect]
     Active Substance: ALBUTEROL
     Indication: PRODUCT USED FOR UNKNOWN INDICATION
     Dosage: FORMULATION: NEBULIZED
     Route: 065

REACTIONS (7)
  - PCO2 increased [Unknown]
  - Tachypnoea [Unknown]
  - Use of accessory respiratory muscles [Unknown]
  - Hypercapnia [Unknown]
  - Drug ineffective [Unknown]
  - Acinetobacter test positive [Unknown]
  - General physical health deterioration [Unknown]
